FAERS Safety Report 12245389 (Version 1)
Quarter: 2016Q2

REPORT INFORMATION
  Report Type: Spontaneous
  Country: US (occurrence: None)
  Receive Date: 20160406
  Receipt Date: 20160406
  Transmission Date: 20160815
  Serious: No
  Sender: FDA-Public Use
  Company Number: None

PATIENT
  Sex: Female

DRUGS (4)
  1. METFORMIN [Suspect]
     Active Substance: METFORMIN HYDROCHLORIDE
  2. LEVEMIR [Suspect]
     Active Substance: INSULIN DETEMIR
  3. TOUJEO [Suspect]
     Active Substance: INSULIN GLARGINE
  4. GLIMEPIRIDE. [Suspect]
     Active Substance: GLIMEPIRIDE

REACTIONS (3)
  - Hypoaesthesia [None]
  - Impaired driving ability [None]
  - Feeling abnormal [None]
